FAERS Safety Report 4432955-3 (Version None)
Quarter: 2004Q3

REPORT INFORMATION
  Report Type: 
  Country: None (occurrence: None)
  Receive Date: 20040823
  Receipt Date: 20040809
  Transmission Date: 20050211
  Serious: Yes (Life-Threatening, Hospitalization)
  Sender: FDA-Public Use
  Company Number: ZANA001157

PATIENT
  Age: 29 Year
  Sex: Female
  Weight: 50 kg

DRUGS (6)
  1. TIZANIDINE HCL [Suspect]
     Indication: MYOTONIA
     Dates: start: 20020913, end: 20020901
  2. TEGRETOL [Suspect]
     Indication: MUSCLE SPASMS
     Dosage: 400 MG DAILY ORAL
     Route: 048
     Dates: start: 20020815, end: 20020908
  3. PREDNISOLONE [Concomitant]
  4. SELBEX (TEPRENONE) [Concomitant]
  5. RIZE (CLOTIAZEPAM) [Concomitant]
  6. GASTER (FAMOTIDINE) [Suspect]
     Dates: start: 20020805, end: 20020812

REACTIONS (18)
  - ALANINE AMINOTRANSFERASE INCREASED [None]
  - ASPARTATE AMINOTRANSFERASE INCREASED [None]
  - B-LYMPHOCYTE ABNORMALITIES [None]
  - EOSINOPHILIA [None]
  - EXTENSOR PLANTAR RESPONSE [None]
  - GAMMA-GLUTAMYLTRANSFERASE INCREASED [None]
  - HEPATIC ENZYME INCREASED [None]
  - HEPATIC FUNCTION ABNORMAL [None]
  - HYPERREFLEXIA [None]
  - HYPOAESTHESIA [None]
  - HYPOGAMMAGLOBULINAEMIA [None]
  - IMMUNODEFICIENCY [None]
  - MULTIPLE SCLEROSIS [None]
  - PNEUMONIA [None]
  - RASH GENERALISED [None]
  - SKIN DESQUAMATION [None]
  - UPPER RESPIRATORY TRACT INFECTION [None]
  - UPPER RESPIRATORY TRACT INFLAMMATION [None]
